FAERS Safety Report 7704117-5 (Version None)
Quarter: 2011Q3

REPORT INFORMATION
  Report Type: 
  Country: None (occurrence: None)
  Receive Date: 20110818
  Receipt Date: 20110804
  Transmission Date: 20111222
  Serious: Yes (Other)
  Sender: FDA-Public Use
  Company Number: JPI-P-016476

PATIENT
  Age: 51 Year
  Sex: Female
  Weight: 80.7403 kg

DRUGS (12)
  1. XYREM [Suspect]
     Indication: FIBROMYALGIA
     Dosage: 6 GM (3 GM, 2 IN 1 D), ORAL 7 GM (3.5 GM, 2 IN 1 D), ORAL
     Route: 048
     Dates: start: 20110101
  2. XYREM [Suspect]
     Indication: SLEEP APNOEA SYNDROME
     Dosage: 6 GM (3 GM, 2 IN 1 D), ORAL 7 GM (3.5 GM, 2 IN 1 D), ORAL
     Route: 048
     Dates: start: 20110101
  3. XYREM [Suspect]
     Indication: FIBROMYALGIA
     Dosage: 6 GM (3 GM, 2 IN 1 D), ORAL 7 GM (3.5 GM, 2 IN 1 D), ORAL
     Route: 048
     Dates: start: 20110511, end: 20110101
  4. XYREM [Suspect]
     Indication: SLEEP APNOEA SYNDROME
     Dosage: 6 GM (3 GM, 2 IN 1 D), ORAL 7 GM (3.5 GM, 2 IN 1 D), ORAL
     Route: 048
     Dates: start: 20110511, end: 20110101
  5. LEVOTHYROXINE SODIUM [Concomitant]
  6. HYDROCODONE BITARTRATE AND ACETAMINOPHEN [Concomitant]
  7. TELMISARTAN AND HYDROCHLOROTHIAZIDE [Concomitant]
  8. PREGABALIN [Concomitant]
  9. ESCITALOPRAM OXALATE [Concomitant]
  10. NAPROXEN [Concomitant]
  11. ETANERCEPT [Concomitant]
  12. BUPROPION HYDROCHLORIDE [Concomitant]

REACTIONS (3)
  - BLOOD UREA INCREASED [None]
  - BLOOD CREATININE INCREASED [None]
  - GLOMERULAR FILTRATION RATE ABNORMAL [None]
